FAERS Safety Report 7150245-5 (Version None)
Quarter: 2010Q4

REPORT INFORMATION
  Report Type: 
  Country: None (occurrence: None)
  Receive Date: 20101207
  Receipt Date: 20101207
  Transmission Date: 20110411
  Serious: Yes (Life-Threatening, Hospitalization, Other)
  Sender: FDA-Public Use
  Company Number: None

PATIENT
  Age: 61 Year
  Sex: Male
  Weight: 61.5 kg

DRUGS (17)
  1. SULFAMETHOXAZOLE AND TRIMETHOPRIM [Suspect]
     Indication: INFECTION PROPHYLAXIS
     Dosage: 400MG/80MG MON, WED, FRI ORAL
     Route: 048
     Dates: start: 20081201, end: 20100401
  2. VALGANCICLOVIR [Suspect]
     Indication: INFECTION PROPHYLAXIS
     Dosage: 450MG TUE, THUR, SAT ORAL
     Route: 048
     Dates: start: 20081201, end: 20100401
  3. TACROLIMUS [Concomitant]
  4. CYCLOBENZAPRINE [Concomitant]
  5. TAMSULOSIN [Concomitant]
  6. ACETAMINOPHEN AND HYDROCODONE BITARTRATE [Concomitant]
  7. ESOMEPRAZOLE [Concomitant]
  8. DOXAZOSIN [Concomitant]
  9. INSULIN GLARGINE [Concomitant]
  10. GABAPENTIN [Concomitant]
  11. AZATHIAPRINE [Concomitant]
  12. TESTOSTERONE 1% [Concomitant]
  13. PRAVASTATIN [Concomitant]
  14. CALCIUM CITRATE + D [Concomitant]
  15. INSULIN LISPRO [Concomitant]
  16. DILTIAZEM CD [Concomitant]
  17. ASPIRIN [Concomitant]

REACTIONS (4)
  - ANAEMIA [None]
  - BONE MARROW FAILURE [None]
  - NEUROPATHY PERIPHERAL [None]
  - NEUTROPENIA [None]
